FAERS Safety Report 17396102 (Version 1)
Quarter: 2020Q1

REPORT INFORMATION
  Report Type: Spontaneous
  Country: GB (occurrence: GB)
  Receive Date: 20200210
  Receipt Date: 20200210
  Transmission Date: 20200409
  Serious: Yes (Disabling)
  Sender: FDA-Public Use
  Company Number: GB-MYLANLABS-2020M1013578

PATIENT
  Age: 45 Year
  Sex: Female
  Weight: 70 kg

DRUGS (2)
  1. FLUCLOXACILLIN [Concomitant]
     Active Substance: FLUCLOXACILLIN
     Dosage: 4 DOSAGE FORM, QD
     Dates: start: 20190902, end: 20190909
  2. RAMIPRIL. [Suspect]
     Active Substance: RAMIPRIL
     Indication: RENAL DISORDER
     Dosage: TO HELP PREVENT KIDNEY DET...
     Dates: start: 20190902

REACTIONS (1)
  - Vision blurred [Recovered/Resolved]
